FAERS Safety Report 18575678 (Version 1)
Quarter: 2020Q4

REPORT INFORMATION
  Report Type: Spontaneous
  Country: US (occurrence: US)
  Receive Date: 20201203
  Receipt Date: 20201203
  Transmission Date: 20210114
  Serious: No
  Sender: FDA-Public Use
  Company Number: US-PFIZER INC-2020474925

PATIENT
  Age: 59 Year
  Sex: Male

DRUGS (1)
  1. DILANTIN [Suspect]
     Active Substance: PHENYTOIN
     Dosage: UNK

REACTIONS (8)
  - Rash [Unknown]
  - Lip swelling [Unknown]
  - Pollakiuria [Unknown]
  - Insomnia [Unknown]
  - Product dose omission issue [Unknown]
  - Burning sensation [Unknown]
  - Urticaria [Unknown]
  - Paraesthesia [Unknown]
